FAERS Safety Report 9769231 (Version 2)
Quarter: 2013Q4

REPORT INFORMATION
  Report Type: Report from Study
  Country: US (occurrence: US)
  Receive Date: 20131218
  Receipt Date: 20131218
  Transmission Date: 20140711
  Serious: Yes (Hospitalization, Other)
  Sender: FDA-Public Use
  Company Number: US-ASTRAZENECA-2013SE15096

PATIENT
  Age: 57 Year
  Sex: Female

DRUGS (8)
  1. SYMBICORT PMDI [Suspect]
     Indication: CHRONIC OBSTRUCTIVE PULMONARY DISEASE
     Route: 055
  2. BONIVA [Concomitant]
     Indication: OSTEOPOROSIS
     Route: 048
  3. FLEXERIL [Concomitant]
     Route: 048
  4. NEURONTIN [Concomitant]
     Indication: NEURALGIA
     Route: 048
  5. NEURONTIN [Concomitant]
     Indication: NEURALGIA
     Route: 048
  6. OXYGEN [Concomitant]
     Route: 055
  7. TRAZADONE [Concomitant]
     Route: 048
  8. VICODIN [Concomitant]
     Indication: PAIN
     Dosage: 8 DAILY

REACTIONS (3)
  - Wrist fracture [Unknown]
  - Fall [Unknown]
  - Gastrointestinal infection [Unknown]
